FAERS Safety Report 13805502 (Version 1)
Quarter: 2017Q3

REPORT INFORMATION
  Report Type: Report from Study
  Country: US (occurrence: US)
  Receive Date: 20170728
  Receipt Date: 20170728
  Transmission Date: 20171127
  Serious: Yes (Hospitalization)
  Sender: FDA-Public Use
  Company Number: US-OTSUKA-2017_016066

PATIENT
  Sex: Male

DRUGS (1)
  1. TOLVAPTAN [Suspect]
     Active Substance: TOLVAPTAN
     Indication: BLOOD SODIUM DECREASED
     Dosage: 15 MG, QD
     Route: 065
     Dates: start: 201707

REACTIONS (3)
  - Malaise [Not Recovered/Not Resolved]
  - Wrong technique in product usage process [Unknown]
  - Blood sodium decreased [Unknown]
